FAERS Safety Report 5366387-0 (Version None)
Quarter: 2007Q2

REPORT INFORMATION
  Report Type: 
  Country: None (occurrence: None)
  Receive Date: 20070622
  Receipt Date: 20070613
  Transmission Date: 20071010
  Serious: Yes (Other)
  Sender: FDA-Public Use
  Company Number: PHBS2007TR09973

PATIENT
  Sex: Male

DRUGS (3)
  1. ZOMETA [Suspect]
     Dosage: 4 MG, QMO
     Route: 042
  2. DELTACORTRIL [Concomitant]
     Dosage: 5 MG, UNK
  3. TAXOTERE [Concomitant]
     Dosage: 80 UNK, QW3

REACTIONS (1)
  - DIARRHOEA HAEMORRHAGIC [None]
